FAERS Safety Report 4638010-1 (Version None)
Quarter: 2005Q2

REPORT INFORMATION
  Report Type: 
  Country: None (occurrence: None)
  Receive Date: 20050418
  Receipt Date: 20050404
  Transmission Date: 20051028
  Serious: Yes (Other)
  Sender: FDA-Public Use
  Company Number: US-GLAXOSMITHKLINE-A0552509A

PATIENT
  Age: 61 Year
  Sex: Female
  Weight: 76.4 kg

DRUGS (10)
  1. CITRUCEL REGULAR SUSPENSION [Suspect]
     Indication: CONSTIPATION
     Route: 048
     Dates: start: 20050403, end: 20050403
  2. VASOTEC [Concomitant]
     Indication: HYPERTENSION
     Dosage: 5MG THREE TIMES PER DAY
     Route: 048
  3. HYOSCYAMINE [Concomitant]
     Indication: GASTRIC DISORDER
     Dosage: .125MG AS REQUIRED
     Route: 048
  4. PREDNISONE [Concomitant]
     Indication: ASTHMA
     Dosage: 5MG AS REQUIRED
     Route: 048
  5. NORGESIC [Concomitant]
     Indication: PAIN
     Route: 048
  6. VICODIN [Concomitant]
     Indication: PAIN
     Route: 048
  7. ZANTAC [Concomitant]
     Indication: GASTROOESOPHAGEAL REFLUX DISEASE
     Dosage: 75MG THREE TIMES PER DAY
     Route: 048
  8. BENADRYL [Concomitant]
     Indication: MULTIPLE ALLERGIES
     Dosage: 25MG SIX TIMES PER DAY
     Route: 048
  9. ADVAIR DISKUS 100/50 [Concomitant]
     Indication: ASTHMA
     Route: 055
  10. ASPIRIN [Concomitant]
     Indication: PAIN
     Route: 048

REACTIONS (3)
  - DISEASE RECURRENCE [None]
  - EPILEPSY [None]
  - MUSCLE TWITCHING [None]
